FAERS Safety Report 19500615 (Version 6)
Quarter: 2021Q3

REPORT INFORMATION
  Report Type: Spontaneous
  Country: CA (occurrence: CA)
  Receive Date: 20210706
  Receipt Date: 20210915
  Transmission Date: 20211014
  Serious: Yes (Hospitalization, Other)
  Sender: FDA-Public Use
  Company Number: CA-CELLTRION INC.-2021CA005308

PATIENT

DRUGS (10)
  1. INFLECTRA [Suspect]
     Active Substance: INFLIXIMAB-DYYB
     Dosage: 600 MG INDUCTION DOSE WEEK 6, THEN EVERY 8 WEEKS
     Route: 042
     Dates: start: 20210507
  2. TYLENOL WITH CODEINE [Concomitant]
     Active Substance: ACETAMINOPHEN\CODEINE PHOSPHATE
     Dosage: 1 DF (DOSAGE NOT AVAILABLE)
     Route: 065
  3. INFLECTRA [Suspect]
     Active Substance: INFLIXIMAB-DYYB
     Indication: CROHN^S DISEASE
     Dosage: 300 MG (INDUCTION DOSES AT WEEK 0, 2 AND 6, THEN EVERY 8 WEEKS)
     Route: 042
     Dates: start: 20210322, end: 20210406
  4. INFLECTRA [Suspect]
     Active Substance: INFLIXIMAB-DYYB
     Dosage: 600 MGINDUCTION DOSE WEEK 6, THEN EVERY 8 WEEKS
     Route: 042
     Dates: start: 20210507
  5. INFLECTRA [Suspect]
     Active Substance: INFLIXIMAB-DYYB
     Dosage: 300 MG (INDUCTION DOSES AT WEEK 0, 2 AND 6, THEN EVERY 8 WEEKS)
     Route: 042
     Dates: start: 20210406
  6. INFLECTRA [Suspect]
     Active Substance: INFLIXIMAB-DYYB
     Dosage: 600 MG INDUCTION DOSE WEEK 6, THEN EVERY 8 WEEKS
     Route: 042
     Dates: start: 20210507
  7. PREDNISONE. [Concomitant]
     Active Substance: PREDNISONE
     Dosage: 1 DF, DAILY
     Route: 065
     Dates: end: 20210619
  8. INFLECTRA [Suspect]
     Active Substance: INFLIXIMAB-DYYB
     Dosage: 600 MG MG INDUCTION DOSE WEEK 6, THEN EVERY 8 WEEKS
     Route: 042
     Dates: start: 20210507
  9. INFLECTRA [Suspect]
     Active Substance: INFLIXIMAB-DYYB
     Dosage: 600MG, EVERY 8 WEEKS
     Route: 042
     Dates: start: 20210816
  10. AZATHIOPRINE. [Concomitant]
     Active Substance: AZATHIOPRINE
     Dosage: 1 DF (DOSAGE NOT AVAILABLE)
     Route: 065

REACTIONS (14)
  - Weight decreased [Not Recovered/Not Resolved]
  - Therapeutic response shortened [Unknown]
  - Vomiting [Not Recovered/Not Resolved]
  - Flatulence [Unknown]
  - Intentional product use issue [Unknown]
  - Inappropriate schedule of product administration [Unknown]
  - Malaise [Unknown]
  - Off label use [Unknown]
  - Abdominal distension [Not Recovered/Not Resolved]
  - Condition aggravated [Unknown]
  - Nausea [Unknown]
  - Constipation [Unknown]
  - Obstruction [Unknown]
  - Decreased appetite [Not Recovered/Not Resolved]

NARRATIVE: CASE EVENT DATE: 202104
